FAERS Safety Report 9357219 (Version 2)
Quarter: 2013Q3

REPORT INFORMATION
  Report Type: Spontaneous
  Country: US (occurrence: US)
  Receive Date: 20130620
  Receipt Date: 20130715
  Transmission Date: 20140515
  Serious: Yes (Other)
  Sender: FDA-Public Use
  Company Number: US-JNJFOC-20130609025

PATIENT
  Age: 48 Year
  Sex: Female
  Weight: 77.11 kg

DRUGS (11)
  1. ZYRTEC D [Suspect]
     Route: 048
  2. ZYRTEC D [Suspect]
     Indication: MULTIPLE ALLERGIES
     Route: 048
  3. NEURONTIN [Interacting]
     Indication: CONVULSION
     Dosage: YEARS
     Route: 065
  4. OXCARBAZEPINE [Interacting]
     Indication: CONVULSION
     Route: 065
  5. FUROSEMIDE [Concomitant]
     Indication: POLYURIA
     Route: 065
     Dates: start: 2001
  6. DIGOXIN [Concomitant]
     Indication: HEART RATE ABNORMAL
     Route: 065
     Dates: start: 2001
  7. DIGOXIN [Concomitant]
     Indication: HYPERTENSION
     Route: 065
     Dates: start: 2001
  8. LISINOPRIL [Concomitant]
     Indication: HYPERTENSION
     Route: 065
     Dates: start: 2001
  9. SIMVASTATIN [Concomitant]
     Indication: BLOOD CHOLESTEROL ABNORMAL
     Route: 065
     Dates: start: 2001
  10. WARFARIN [Concomitant]
     Indication: ANTICOAGULANT THERAPY
     Dosage: 5 MG, 1 TO 2 DAILY
     Route: 065
     Dates: start: 2001
  11. TIROSINT [Concomitant]
     Indication: HYPOTHYROIDISM
     Route: 065
     Dates: start: 2012

REACTIONS (2)
  - Convulsion [Recovered/Resolved]
  - Drug interaction [Recovered/Resolved]
